FAERS Safety Report 5266113-X (Version None)
Quarter: 2007Q1

REPORT INFORMATION
  Report Type: 
  Country: None (occurrence: None)
  Receive Date: 20070315
  Receipt Date: 20070303
  Transmission Date: 20070707
  Serious: Yes (Other)
  Sender: FDA-Public Use
  Company Number: PHEH2006US13634

PATIENT
  Age: 65 Year
  Sex: Female

DRUGS (3)
  1. FEMARA [Suspect]
     Indication: BREAST CANCER
     Dosage: 2.5 MG, QD
     Route: 048
     Dates: start: 20060601
  2. ACCUPRIL [Concomitant]
     Indication: HYPERTENSION
     Dosage: 20 MG, UNK
  3. ACCUPRIL [Concomitant]
     Dosage: 80 MG, UNK

REACTIONS (1)
  - HYPERTENSION [None]
